FAERS Safety Report 9687532 (Version 1)
Quarter: 2013Q4

REPORT INFORMATION
  Report Type: Spontaneous
  Country: FR (occurrence: FR)
  Receive Date: 20131114
  Receipt Date: 20131114
  Transmission Date: 20140711
  Serious: Yes (Hospitalization)
  Sender: FDA-Public Use
  Company Number: FR-JNJFOC-20131103964

PATIENT
  Age: 61 Year
  Sex: Male

DRUGS (17)
  1. REMICADE [Suspect]
     Indication: ACUTE FEBRILE NEUTROPHILIC DERMATOSIS
     Dosage: INBETWEEN 26-JUN-2013TO 28-JUN-2013
     Route: 042
     Dates: start: 201306
  2. REMICADE [Suspect]
     Indication: ACUTE FEBRILE NEUTROPHILIC DERMATOSIS
     Route: 042
     Dates: start: 201305
  3. REMICADE [Suspect]
     Indication: ACUTE FEBRILE NEUTROPHILIC DERMATOSIS
     Dosage: COURSE 21??INTER-TREATMENT INTERVAL FOR 2 COURSES
     Route: 042
     Dates: start: 201209
  4. REMICADE [Suspect]
     Indication: ACUTE FEBRILE NEUTROPHILIC DERMATOSIS
     Route: 042
     Dates: start: 201306
  5. REMICADE [Suspect]
     Indication: ACUTE FEBRILE NEUTROPHILIC DERMATOSIS
     Dosage: IN BETWEEN 26-AUG-2013 TO 28-AUG-2013
     Route: 042
     Dates: start: 201308
  6. REMICADE [Suspect]
     Indication: ACUTE FEBRILE NEUTROPHILIC DERMATOSIS
     Route: 042
     Dates: start: 20130405
  7. REMICADE [Suspect]
     Indication: ACUTE FEBRILE NEUTROPHILIC DERMATOSIS
     Route: 042
     Dates: start: 20130502
  8. REMICADE [Suspect]
     Indication: ACUTE FEBRILE NEUTROPHILIC DERMATOSIS
     Route: 042
     Dates: start: 20110118
  9. REMICADE [Suspect]
     Indication: ACUTE FEBRILE NEUTROPHILIC DERMATOSIS
     Route: 042
     Dates: start: 201302
  10. REMICADE [Suspect]
     Indication: ACUTE FEBRILE NEUTROPHILIC DERMATOSIS
     Route: 042
  11. REMICADE [Suspect]
     Indication: ACUTE FEBRILE NEUTROPHILIC DERMATOSIS
     Dosage: COURSE 22:??WITH ONE DRIP EVERY 3 WEEKS
     Route: 042
     Dates: start: 201210, end: 20121129
  12. CORTICOSTEROIDS [Concomitant]
     Route: 065
  13. IMMUNOGLOBULIN [Concomitant]
     Dosage: ONE DRIP
     Route: 042
     Dates: start: 201210
  14. IMMUNOGLOBULIN [Concomitant]
     Route: 042
     Dates: start: 20130502
  15. IMMUNOGLOBULIN [Concomitant]
     Route: 042
     Dates: start: 201306
  16. IMMUNOGLOBULIN [Concomitant]
     Route: 042
     Dates: start: 201308
  17. IMMUNOGLOBULIN [Concomitant]
     Route: 042
     Dates: start: 20121129

REACTIONS (9)
  - Eosinophilia [Recovered/Resolved]
  - Sepsis [Unknown]
  - Acute febrile neutrophilic dermatosis [Not Recovered/Not Resolved]
  - Histiocytosis haematophagic [Unknown]
  - Chronic myelomonocytic leukaemia [Unknown]
  - Monocytosis [Not Recovered/Not Resolved]
  - Off label use [Unknown]
  - Cough [Unknown]
  - Pruritus [Unknown]
